FAERS Safety Report 6032963-5 (Version None)
Quarter: 2009Q1

REPORT INFORMATION
  Report Type: 
  Country: None (occurrence: None)
  Receive Date: 20090109
  Receipt Date: 20090107
  Transmission Date: 20090719
  Serious: Yes (Other)
  Sender: FDA-Public Use
  Company Number: A0747382A

PATIENT
  Age: 53 Year
  Sex: Female
  Weight: 116.4 kg

DRUGS (9)
  1. AVANDIA [Suspect]
     Dosage: 2MG TWICE PER DAY
     Route: 048
     Dates: start: 20030101, end: 20070705
  2. AVANDARYL [Suspect]
     Dosage: 4MG PER DAY
     Route: 048
     Dates: start: 20060702, end: 20070613
  3. AVANDAMET [Suspect]
     Route: 048
  4. METFORMIN HCL [Concomitant]
  5. LISINOPRIL [Concomitant]
  6. CRESTOR [Concomitant]
  7. METRONIDAZOLE HCL [Concomitant]
  8. CLINDAMYCIN HCL [Concomitant]
  9. GLUCOPHAGE [Concomitant]

REACTIONS (1)
  - MYOCARDIAL INFARCTION [None]
